APPROVED DRUG PRODUCT: PRED FORTE
Active Ingredient: PREDNISOLONE ACETATE
Strength: 1%
Dosage Form/Route: SUSPENSION/DROPS;OPHTHALMIC
Application: N017011 | Product #001 | TE Code: AB
Applicant: ABBVIE INC
Approved: Approved Prior to Jan 1, 1982 | RLD: Yes | RS: Yes | Type: RX